FAERS Safety Report 12849337 (Version 12)
Quarter: 2017Q2

REPORT INFORMATION
  Report Type: Report from Study
  Country: DE (occurrence: DE)
  Receive Date: 20161014
  Receipt Date: 20170501
  Transmission Date: 20170830
  Serious: Yes (Death, Hospitalization)
  Sender: FDA-Public Use
  Company Number: DE-B.I. PHARMACEUTICALS,INC./RIDGEFIELD-2016-BI-60158II

PATIENT
  Age: 53 Year
  Sex: Male

DRUGS (2)
  1. BIBF 1120 [Suspect]
     Active Substance: NINTEDANIB
     Indication: GLIOBLASTOMA
     Route: 048
     Dates: start: 20160726
  2. BIBF 1120 [Suspect]
     Active Substance: NINTEDANIB
     Route: 048
     Dates: start: 20160819, end: 20160914

REACTIONS (9)
  - Intestinal ischaemia [Recovered/Resolved]
  - Abdominal pain upper [Recovered/Resolved]
  - Wound infection [Fatal]
  - Abdominal pain upper [Recovered/Resolved]
  - Embolism [Recovered/Resolved]
  - Impaired healing [Fatal]
  - Peripheral ischaemia [Not Recovered/Not Resolved]
  - Constipation [Recovered/Resolved]
  - Colitis ischaemic [Not Recovered/Not Resolved]

NARRATIVE: CASE EVENT DATE: 20160912
